FAERS Safety Report 8174636-9 (Version None)
Quarter: 2012Q1

REPORT INFORMATION
  Report Type: 
  Country: None (occurrence: None)
  Receive Date: 20120229
  Receipt Date: 20120223
  Transmission Date: 20120608
  Serious: Yes (Hospitalization)
  Sender: FDA-Public Use
  Company Number: US-JNJFOC-20120213046

PATIENT
  Sex: Male
  Weight: 66.5 kg

DRUGS (11)
  1. ZOFRAN [Concomitant]
  2. MULTI-VITAMINS [Concomitant]
  3. HUMIRA [Concomitant]
     Dates: start: 20110615
  4. PROBIOTICS [Concomitant]
  5. PRILOSEC [Concomitant]
  6. ZANTAC [Concomitant]
  7. FERROUS SULFATE TAB [Concomitant]
  8. REMICADE [Suspect]
     Indication: INFLAMMATORY BOWEL DISEASE
     Route: 042
     Dates: start: 20080829, end: 20110425
  9. MIRALAX [Concomitant]
  10. CALCIUM WITH VITAMIN D [Concomitant]
  11. HYOSCYAMINE [Concomitant]

REACTIONS (1)
  - INTESTINAL STENOSIS [None]
